FAERS Safety Report 18197990 (Version 3)
Quarter: 2020Q3

REPORT INFORMATION
  Report Type: Spontaneous
  Country: ES (occurrence: ES)
  Receive Date: 20200826
  Receipt Date: 20200918
  Transmission Date: 20201103
  Serious: Yes (Life-Threatening)
  Sender: FDA-Public Use
  Company Number: NVSC2020ES234931

PATIENT
  Age: 27 Year
  Sex: Male

DRUGS (1)
  1. KYMRIAH [Suspect]
     Active Substance: TISAGENLECLEUCEL
     Indication: LEUKAEMIA
     Dosage: UNK (1,2 X 10E6 ? 6,0 X 10E8 CELULAS DISPERSION PARA PERFUSION 1?3 BOLSAS DE PERFUSI?N (1 DOSIS DE T
     Route: 042
     Dates: start: 20190724, end: 20190724

REACTIONS (2)
  - Second primary malignancy [Not Recovered/Not Resolved]
  - Malignant melanoma [Not Recovered/Not Resolved]

NARRATIVE: CASE EVENT DATE: 20200501
